FAERS Safety Report 7880096-5 (Version None)
Quarter: 2011Q4

REPORT INFORMATION
  Report Type: 
  Country: None (occurrence: None)
  Receive Date: 20111101
  Receipt Date: 20111026
  Transmission Date: 20120403
  Serious: Yes (Death)
  Sender: FDA-Public Use
  Company Number: SI-AMGEN-SVNCT2011055586

PATIENT
  Sex: Male

DRUGS (1)
  1. CINACALCET HYDROCHLORIDE [Suspect]
     Indication: RENAL FAILURE CHRONIC
     Dosage: 30 MG, QD
     Route: 048

REACTIONS (1)
  - DEATH [None]
